FAERS Safety Report 22030765 (Version 1)
Quarter: 2023Q1

REPORT INFORMATION
  Report Type: Spontaneous
  Country: IT (occurrence: IT)
  Receive Date: 20230223
  Receipt Date: 20230223
  Transmission Date: 20230417
  Serious: Yes (Other)
  Sender: FDA-Public Use
  Company Number: IT-ROCHE-3285406

PATIENT
  Age: 63 Year
  Sex: Male
  Weight: 89 kg

DRUGS (18)
  1. DEXAMETHASONE [Suspect]
     Active Substance: DEXAMETHASONE
     Indication: B-cell lymphoma
     Route: 065
     Dates: start: 202006, end: 202011
  2. CISPLATIN [Suspect]
     Active Substance: CISPLATIN
     Indication: B-cell lymphoma
     Route: 065
     Dates: start: 202006, end: 202011
  3. CYCLOPHOSPHAMIDE [Suspect]
     Active Substance: CYCLOPHOSPHAMIDE
     Indication: B-cell lymphoma
     Route: 065
     Dates: start: 201412, end: 201504
  4. CYCLOPHOSPHAMIDE [Suspect]
     Active Substance: CYCLOPHOSPHAMIDE
     Route: 065
     Dates: start: 201905, end: 201910
  5. VINCRISTINE SULFATE [Suspect]
     Active Substance: VINCRISTINE SULFATE
     Indication: B-cell lymphoma
     Route: 065
     Dates: start: 201412, end: 201504
  6. VINCRISTINE SULFATE [Suspect]
     Active Substance: VINCRISTINE SULFATE
     Route: 065
     Dates: start: 201905, end: 201910
  7. CYTARABINE [Suspect]
     Active Substance: CYTARABINE
     Indication: B-cell lymphoma
     Route: 065
     Dates: start: 202006, end: 202011
  8. PREDNISONE [Suspect]
     Active Substance: PREDNISONE
     Indication: B-cell lymphoma
     Route: 065
     Dates: start: 201412, end: 201504
  9. PREDNISONE [Suspect]
     Active Substance: PREDNISONE
     Route: 065
     Dates: start: 201905, end: 201910
  10. TISAGENLECLEUCEL [Suspect]
     Active Substance: TISAGENLECLEUCEL
     Indication: B-cell lymphoma
     Route: 065
     Dates: start: 20221020
  11. RITUXIMAB [Suspect]
     Active Substance: RITUXIMAB
     Indication: B-cell lymphoma
     Route: 065
     Dates: start: 201412, end: 201504
  12. RITUXIMAB [Suspect]
     Active Substance: RITUXIMAB
     Route: 065
     Dates: start: 201905, end: 201910
  13. RITUXIMAB [Suspect]
     Active Substance: RITUXIMAB
     Route: 065
     Dates: start: 202006, end: 202011
  14. RITUXIMAB [Suspect]
     Active Substance: RITUXIMAB
     Route: 065
     Dates: start: 202204, end: 202206
  15. GEMFIBROZIL [Suspect]
     Active Substance: GEMFIBROZIL
     Indication: B-cell lymphoma
     Route: 065
     Dates: start: 202204, end: 202206
  16. DOXORUBICIN HYDROCHLORIDE [Suspect]
     Active Substance: DOXORUBICIN HYDROCHLORIDE
     Indication: B-cell lymphoma
     Route: 065
     Dates: start: 201905, end: 201910
  17. ACYCLOVIR [Concomitant]
     Active Substance: ACYCLOVIR
     Indication: Product used for unknown indication
  18. SULFAMETHOXAZOLE\TRIMETHOPRIM [Concomitant]
     Active Substance: SULFAMETHOXAZOLE\TRIMETHOPRIM
     Indication: Product used for unknown indication

REACTIONS (2)
  - Disease progression [Unknown]
  - Off label use [Unknown]
